FAERS Safety Report 24452946 (Version 1)
Quarter: 2024Q4

REPORT INFORMATION
  Report Type: Spontaneous
  Country: US (occurrence: US)
  Receive Date: 20241017
  Receipt Date: 20241017
  Transmission Date: 20250115
  Serious: No
  Sender: SUNOVION
  Company Number: US-UROVANT SCIENCES GMBH-202405-URV-000802

PATIENT
  Age: 77 Year
  Sex: Female

DRUGS (7)
  1. GEMTESA [Suspect]
     Active Substance: VIBEGRON
     Dosage: UNK, QD, NIGHT (DINNER)
     Route: 065
     Dates: start: 202405
  2. GEMTESA [Suspect]
     Active Substance: VIBEGRON
     Indication: Micturition urgency
  3. GEMTESA [Suspect]
     Active Substance: VIBEGRON
     Indication: Nocturia
  4. GEMTESA [Suspect]
     Active Substance: VIBEGRON
     Indication: Pollakiuria
  5. PANTOPRAZOLE SODIUM [Concomitant]
     Active Substance: PANTOPRAZOLE SODIUM
     Indication: Product used for unknown indication
     Dosage: 40 MG
     Route: 065
  6. METOPROLOL [Concomitant]
     Active Substance: METOPROLOL
     Indication: Product used for unknown indication
     Dosage: 25 MG
     Route: 065
  7. TAXOL [Concomitant]
     Active Substance: PACLITAXEL
     Indication: Product used for unknown indication
     Dosage: 20 MG
     Route: 065

REACTIONS (1)
  - Drug ineffective [Unknown]
